FAERS Safety Report 21993336 (Version 1)
Quarter: 2023Q1

REPORT INFORMATION
  Report Type: Spontaneous
  Country: US (occurrence: US)
  Receive Date: 20230215
  Receipt Date: 20230215
  Transmission Date: 20230418
  Serious: No
  Sender: FDA-Public Use
  Company Number: US-PADAGIS-2023PAD00107

PATIENT

DRUGS (1)
  1. IMIQUIMOD [Suspect]
     Active Substance: IMIQUIMOD
     Indication: Metastasis
     Dosage: UNK, BID (ENTIRE SCALP)
     Route: 061

REACTIONS (2)
  - Erythema [Unknown]
  - Product use in unapproved indication [Unknown]
